FAERS Safety Report 9220963 (Version 1)
Quarter: 2013Q2

REPORT INFORMATION
  Report Type: Spontaneous
  Country: CH (occurrence: CH)
  Receive Date: 20130409
  Receipt Date: 20130409
  Transmission Date: 20140414
  Serious: Yes (Other)
  Sender: FDA-Public Use
  Company Number: CH-ROXANE LABORATORIES, INC.-2013-RO-00458RO

PATIENT
  Age: 37 Year
  Sex: Female

DRUGS (4)
  1. RISPERIDONE [Suspect]
     Indication: SCHIZOPHRENIA
  2. ARIPIPRAZOL [Concomitant]
     Indication: SCHIZOPHRENIA
     Dosage: 20 MG
  3. HALOPERIDOL [Concomitant]
     Indication: SCHIZOPHRENIA
     Dosage: 3 MG
  4. ESCITALOPRAM [Concomitant]
     Indication: SCHIZOPHRENIA
     Dosage: 20 MG

REACTIONS (1)
  - Long QT syndrome [Recovered/Resolved]
